FAERS Safety Report 5336766-6 (Version None)
Quarter: 2007Q2

REPORT INFORMATION
  Report Type: 
  Country: None (occurrence: None)
  Receive Date: 20070529
  Receipt Date: 20070515
  Transmission Date: 20071010
  Serious: Yes (Life-Threatening)
  Sender: FDA-Public Use
  Company Number: JP-ROCHE-490872

PATIENT
  Age: 13 Year
  Sex: Male
  Weight: 54 kg

DRUGS (5)
  1. TAMIFLU [Suspect]
     Route: 048
     Dates: start: 20070315, end: 20070317
  2. TAMIFLU [Suspect]
     Route: 048
     Dates: start: 20070318, end: 20070318
  3. LOXONIN [Concomitant]
     Route: 048
     Dates: start: 20070315, end: 20070323
  4. ZYRTEC [Concomitant]
     Route: 048
     Dates: start: 20070315, end: 20070323
  5. ASVERIN [Concomitant]
     Route: 048
     Dates: start: 20070315, end: 20070323

REACTIONS (2)
  - ABNORMAL BEHAVIOUR [None]
  - HALLUCINATION, VISUAL [None]
